FAERS Safety Report 6131856-2 (Version None)
Quarter: 2009Q1

REPORT INFORMATION
  Report Type: 
  Country: None (occurrence: None)
  Receive Date: 20090325
  Receipt Date: 20090313
  Transmission Date: 20090719
  Serious: Yes (Death)
  Sender: FDA-Public Use
  Company Number: PT-CELGENEUS-130-20785-09031384

PATIENT
  Age: 58 Year
  Sex: Male

DRUGS (6)
  1. THALIDOMIDE [Suspect]
     Indication: MULTIPLE MYELOMA
     Route: 048
     Dates: start: 20080616, end: 20080618
  2. VELCADE [Suspect]
     Indication: MULTIPLE MYELOMA
     Route: 051
     Dates: start: 20080616, end: 20080616
  3. DEXAMETHASONE TAB [Suspect]
     Indication: MULTIPLE MYELOMA
     Route: 048
     Dates: start: 20080606, end: 20080618
  4. AMIODARONE HCL [Concomitant]
     Route: 065
  5. SIMVASTATIN [Concomitant]
     Indication: DRUG USE FOR UNKNOWN INDICATION
     Route: 065
  6. ENALAPRIL MALEATE [Concomitant]
     Indication: DRUG USE FOR UNKNOWN INDICATION
     Route: 065

REACTIONS (3)
  - BRADYCARDIA [None]
  - CARDIO-RESPIRATORY ARREST [None]
  - VENTRICULAR FIBRILLATION [None]
